FAERS Safety Report 4637587-X (Version None)
Quarter: 2005Q2

REPORT INFORMATION
  Report Type: 
  Country: None (occurrence: None)
  Receive Date: 20050418
  Receipt Date: 20050314
  Transmission Date: 20051028
  Serious: Yes (Other)
  Sender: FDA-Public Use
  Company Number: US-BOEHRINGER INGELHEIM PHARMACEUTICALS, INC.-2005-BP-04327BP

PATIENT
  Age: 67 Year
  Sex: Male

DRUGS (7)
  1. SPIRIVA [Suspect]
     Indication: CHRONIC OBSTRUCTIVE PULMONARY DISEASE
     Route: 055
     Dates: start: 20040701
  2. ALBUTEROL [Concomitant]
     Indication: CHRONIC OBSTRUCTIVE PULMONARY DISEASE
     Dosage: PRN (UP TO TID)
     Route: 055
     Dates: start: 20050201
  3. FLOMAX [Concomitant]
     Indication: BENIGN PROSTATIC HYPERPLASIA
     Route: 048
  4. SYNTHROID [Concomitant]
     Indication: HYPOTHYROIDISM
     Route: 048
  5. ZANTAC [Concomitant]
     Indication: GASTROOESOPHAGEAL REFLUX DISEASE
     Route: 048
  6. ESKALITH [Concomitant]
     Indication: DEPRESSION
     Route: 048
  7. NEURONTIN [Concomitant]

REACTIONS (6)
  - DYSPHONIA [None]
  - DYSPNOEA [None]
  - HAEMOPTYSIS [None]
  - LYMPHADENOPATHY [None]
  - PHARYNGOLARYNGEAL PAIN [None]
  - THROAT CANCER [None]
